FAERS Safety Report 7182789-4 (Version None)
Quarter: 2010Q4

REPORT INFORMATION
  Report Type: 
  Country: None (occurrence: None)
  Receive Date: 20101221
  Receipt Date: 20100730
  Transmission Date: 20110411
  Serious: No
  Sender: FDA-Public Use
  Company Number: US-AMGEN-TCS412661

PATIENT

DRUGS (10)
  1. ENBREL [Suspect]
     Indication: RHEUMATOID ARTHRITIS
     Dosage: 50 MG, QWK
     Route: 058
     Dates: start: 20000901
  2. FEXOFENADINE HCL [Concomitant]
     Dosage: 60 MG, QOD
     Route: 048
  3. SULFASALAZINE [Concomitant]
     Dosage: 500 MG, QID
     Route: 048
  4. CYCLOBENZAPRINE HCL [Concomitant]
     Dosage: 10 MG, QD
     Route: 048
  5. FLUTICASONE PROPIONATE [Concomitant]
     Dosage: UNK UNK, QOD
     Route: 045
  6. LORSARTAN POTASSIUM HYDROCHLORIDE [Concomitant]
     Dosage: UNK UNK, QD
     Route: 048
  7. METRONIDAZOLE [Concomitant]
     Dosage: 75 %, UNK
     Route: 062
  8. PREDNISONE [Concomitant]
     Dosage: 5 MG, UNK
     Route: 048
  9. OMEPRAZOLE [Concomitant]
     Dosage: 20 MG, QD
     Route: 048
  10. METHOTREXATE [Concomitant]
     Dosage: 7.5 MG, QWK
     Route: 048

REACTIONS (3)
  - DYSPHONIA [None]
  - FUNGAL INFECTION [None]
  - SINUSITIS [None]
